FAERS Safety Report 21003238 (Version 1)
Quarter: 2022Q2

REPORT INFORMATION
  Report Type: Report from Study
  Country: CO (occurrence: CO)
  Receive Date: 20220624
  Receipt Date: 20220624
  Transmission Date: 20220721
  Serious: Yes (Hospitalization, Other)
  Sender: FDA-Public Use
  Company Number: CO-ABBVIE-22K-036-4445493-00

PATIENT
  Age: 55 Year
  Sex: Female
  Weight: 56 kg

DRUGS (3)
  1. ZEMPLAR [Suspect]
     Active Substance: PARICALCITOL
     Indication: Hyperparathyroidism secondary
     Dosage: 1 UNIT DOSE POST-DIALYSIS
     Route: 042
     Dates: start: 20201130, end: 20220530
  2. ZEMPLAR [Suspect]
     Active Substance: PARICALCITOL
     Indication: Chronic kidney disease
  3. CEFAZOLIN [Suspect]
     Active Substance: CEFAZOLIN
     Indication: Product used for unknown indication
     Dosage: SINGLE INTRAHOSPITAL DOSE
     Route: 065
     Dates: start: 202106, end: 202106

REACTIONS (7)
  - Respiratory disorder [Recovered/Resolved]
  - Blood pressure fluctuation [Recovered/Resolved]
  - Cardiac disorder [Recovered/Resolved]
  - Inflammation [Recovered/Resolved]
  - Blood pressure fluctuation [Recovering/Resolving]
  - Blood phosphorus abnormal [Not Recovered/Not Resolved]
  - Hypotension [Recovered/Resolved]

NARRATIVE: CASE EVENT DATE: 20201101
